FAERS Safety Report 10907148 (Version 1)
Quarter: 2015Q1

REPORT INFORMATION
  Report Type: Spontaneous
  Country: US (occurrence: None)
  Receive Date: 20150309
  Receipt Date: 20150309
  Transmission Date: 20150721
  Serious: Yes (Disabling)
  Sender: FDA-Public Use
  Company Number: None

PATIENT
  Age: 56 Year
  Sex: Female
  Weight: 95.26 kg

DRUGS (13)
  1. VALIUM PRN [Concomitant]
  2. MAXALT PRN [Concomitant]
  3. VITAMIN D [Concomitant]
     Active Substance: CHOLECALCIFEROL
  4. EFFEXOR [Concomitant]
     Active Substance: VENLAFAXINE HYDROCHLORIDE
  5. FIORICET PRN [Concomitant]
  6. TRAMADOL PRN [Concomitant]
  7. PROBIOTICS [Concomitant]
     Active Substance: PROBIOTICS NOS
  8. FISH OIL [Concomitant]
     Active Substance: FISH OIL
  9. PRILOSEC [Concomitant]
     Active Substance: OMEPRAZOLE MAGNESIUM
  10. BOTOX [Suspect]
     Active Substance: ONABOTULINUMTOXINA
     Indication: MIGRAINE
     Dosage: 1 VIAL, Q 12 WEEKS X 2 YEARS
     Route: 030
     Dates: start: 2012, end: 2014
  11. TRAZODONE [Concomitant]
     Active Substance: TRAZODONE HYDROCHLORIDE
  12. METAMUCIL [Concomitant]
     Active Substance: PLANTAGO SEED
  13. MIRALAX [Concomitant]
     Active Substance: POLYETHYLENE GLYCOL 3350

REACTIONS (21)
  - Arrhythmia [None]
  - Irritability [None]
  - Neuralgia [None]
  - Impaired work ability [None]
  - Hypoaesthesia [None]
  - Blepharospasm [None]
  - Constipation [None]
  - Muscle spasms [None]
  - Gastrooesophageal reflux disease [None]
  - Paraesthesia [None]
  - Eye disorder [None]
  - Heart rate increased [None]
  - Lacrimation increased [None]
  - General physical health deterioration [None]
  - Migraine [None]
  - Depression [None]
  - Muscular weakness [None]
  - Anxiety [None]
  - Fatigue [None]
  - Pain [None]
  - Wheezing [None]

NARRATIVE: CASE EVENT DATE: 20140829
